FAERS Safety Report 10749041 (Version 5)
Quarter: 2016Q1

REPORT INFORMATION
  Report Type: Report from Study
  Country: RO (occurrence: RO)
  Receive Date: 20150129
  Receipt Date: 20160324
  Transmission Date: 20160525
  Serious: Yes (Other)
  Sender: FDA-Public Use
  Company Number: RO-GILEAD-2015-0133801

PATIENT
  Age: 51 Year
  Sex: Male
  Weight: 93 kg

DRUGS (21)
  1. IDELALISIB [Suspect]
     Active Substance: IDELALISIB
     Dosage: 100 MG, BID
     Route: 048
     Dates: start: 20150303, end: 20150309
  2. PARACETAMOL [Concomitant]
     Active Substance: ACETAMINOPHEN
     Indication: PREMEDICATION
     Dosage: UNK
     Route: 048
     Dates: start: 20150112, end: 20150112
  3. PARACETAMOL [Concomitant]
     Active Substance: ACETAMINOPHEN
     Dosage: UNK
     Route: 048
     Dates: start: 20150119, end: 20150119
  4. LORATADINA [Concomitant]
     Active Substance: LORATADINE
     Dosage: UNK
     Route: 048
     Dates: start: 20150119, end: 20150119
  5. RITUXIMAB [Suspect]
     Active Substance: RITUXIMAB
     Indication: CHROMOSOMAL DELETION
     Dosage: 787 MG, Q1WK
     Route: 042
     Dates: start: 20150119, end: 20150119
  6. RITUXIMAB [Suspect]
     Active Substance: RITUXIMAB
     Dosage: 787 MG, Q1WK
     Route: 042
     Dates: start: 20150202, end: 20150202
  7. RITUXIMAB [Suspect]
     Active Substance: RITUXIMAB
     Dosage: 787 MG, Q1WK
     Route: 042
     Dates: start: 20150303, end: 20150303
  8. DEXAMETHASONE. [Concomitant]
     Active Substance: DEXAMETHASONE
     Indication: PREMEDICATION
     Dosage: UNK
     Route: 042
     Dates: start: 20150119, end: 20150119
  9. IDELALISIB [Suspect]
     Active Substance: IDELALISIB
     Dosage: 100 MG, BID
     Route: 048
     Dates: start: 20150323, end: 20150510
  10. IDELALISIB [Suspect]
     Active Substance: IDELALISIB
     Dosage: 150 MG, BID
     Route: 048
     Dates: start: 20151120
  11. IDELALISIB [Suspect]
     Active Substance: IDELALISIB
     Indication: CHRONIC LYMPHOCYTIC LEUKAEMIA
     Dosage: 150 MG, BID
     Route: 048
     Dates: start: 20150112, end: 20150122
  12. IDELALISIB [Suspect]
     Active Substance: IDELALISIB
     Dosage: 150 MG, BID
     Route: 048
     Dates: start: 20150216, end: 20150217
  13. RITUXIMAB [Suspect]
     Active Substance: RITUXIMAB
     Indication: CHRONIC LYMPHOCYTIC LEUKAEMIA
     Dosage: 787 MG, Q1WK
     Route: 042
     Dates: start: 20150112, end: 20150112
  14. RITUXIMAB [Suspect]
     Active Substance: RITUXIMAB
     Dosage: 787 MG, Q1WK
     Route: 042
     Dates: start: 20150126, end: 20150126
  15. IDELALISIB [Suspect]
     Active Substance: IDELALISIB
     Indication: CHROMOSOMAL DELETION
     Dosage: 100 MG, BID
     Route: 048
     Dates: start: 20150126, end: 20150215
  16. IDELALISIB [Suspect]
     Active Substance: IDELALISIB
     Dosage: 150 MG, BID
     Route: 048
     Dates: start: 20150511, end: 20151111
  17. RITUXIMAB [Suspect]
     Active Substance: RITUXIMAB
     Dosage: UNK
     Route: 042
  18. LORATADINA [Concomitant]
     Active Substance: LORATADINE
     Indication: PREMEDICATION
     Dosage: UNK
     Route: 048
     Dates: start: 20150112, end: 20150112
  19. RITUXIMAB [Suspect]
     Active Substance: RITUXIMAB
     Dosage: 787 MG, Q1WK
     Route: 042
     Dates: start: 20150209, end: 20150209
  20. RITUXIMAB [Suspect]
     Active Substance: RITUXIMAB
     Dosage: 787 MG, Q1WK
     Route: 042
     Dates: start: 20150216, end: 20150216
  21. DEXAMETHASONE. [Concomitant]
     Active Substance: DEXAMETHASONE
     Dosage: UNK
     Route: 042
     Dates: start: 20150112, end: 20150112

REACTIONS (1)
  - Dyslipidaemia [Recovered/Resolved]

NARRATIVE: CASE EVENT DATE: 20150120
